FAERS Safety Report 13338892 (Version 9)
Quarter: 2017Q3

REPORT INFORMATION
  Report Type: Spontaneous
  Country: US (occurrence: US)
  Receive Date: 20170315
  Receipt Date: 20170901
  Transmission Date: 20171127
  Serious: Yes (Congenital Anomaly, Other)
  Sender: FDA-Public Use
  Company Number: PHEH2017US007536

PATIENT
  Sex: Male

DRUGS (2)
  1. ZOFRAN [Suspect]
     Active Substance: ONDANSETRON HYDROCHLORIDE
     Indication: FOETAL EXPOSURE DURING PREGNANCY
     Dosage: MOTHER^S DOSE: 8 MG, UNK
     Route: 064
  2. ZOFRAN [Suspect]
     Active Substance: ONDANSETRON HYDROCHLORIDE
     Indication: FOETAL EXPOSURE DURING PREGNANCY
     Dosage: MOTHER^S DOSE: 8 MG, UNK
     Route: 064

REACTIONS (24)
  - Muscle strain [Unknown]
  - Sinusitis [Unknown]
  - Bronchitis [Unknown]
  - Chest pain [Unknown]
  - Amniotic band syndrome [Unknown]
  - Cytogenetic abnormality [Unknown]
  - Injury [Unknown]
  - Back pain [Unknown]
  - Road traffic accident [Unknown]
  - Oropharyngeal pain [Unknown]
  - Traumatic haematoma [Unknown]
  - Foot deformity [Unknown]
  - Nasal congestion [Unknown]
  - Premature baby [Unknown]
  - Ear pain [Unknown]
  - Talipes [Unknown]
  - Viral infection [Unknown]
  - Rash [Recovered/Resolved]
  - Cough [Unknown]
  - Penile adhesion [Unknown]
  - Pharyngitis [Unknown]
  - Foetal exposure during pregnancy [Unknown]
  - Nasopharyngitis [Unknown]
  - Penile pain [Unknown]

NARRATIVE: CASE EVENT DATE: 20040713
